FAERS Safety Report 13188536 (Version 1)
Quarter: 2017Q1

REPORT INFORMATION
  Report Type: Spontaneous
  Country: US (occurrence: US)
  Receive Date: 20170206
  Receipt Date: 20170206
  Transmission Date: 20170428
  Serious: Yes (Death)
  Sender: FDA-Public Use
  Company Number: US-PFIZER INC-2017044551

PATIENT
  Age: 64 Year
  Sex: Male
  Weight: 61.22 kg

DRUGS (1)
  1. REVATIO [Suspect]
     Active Substance: SILDENAFIL CITRATE
     Indication: RAYNAUD^S PHENOMENON
     Dosage: UNK UNK, 2X/DAY

REACTIONS (3)
  - Cardiac disorder [Fatal]
  - Lymphoma [Fatal]
  - Product use issue [Unknown]
